FAERS Safety Report 4873704-4 (Version None)
Quarter: 2006Q1

REPORT INFORMATION
  Report Type: 
  Country: None (occurrence: None)
  Receive Date: 20060104
  Receipt Date: 20060104
  Transmission Date: 20060701
  Serious: Yes (Life-Threatening)
  Sender: FDA-Public Use
  Company Number: None

PATIENT
  Age: 79 Year
  Sex: Male
  Weight: 74 kg

DRUGS (1)
  1. ATENOLOL [Suspect]
     Indication: CORONARY ARTERY DISEASE
     Dosage: 25 DAILY
     Dates: end: 20050627

REACTIONS (2)
  - ATRIOVENTRICULAR BLOCK COMPLETE [None]
  - DEHYDRATION [None]
